FAERS Safety Report 11388823 (Version 1)
Quarter: 2015Q3

REPORT INFORMATION
  Report Type: Spontaneous
  Country: SI (occurrence: SI)
  Receive Date: 20150817
  Receipt Date: 20150817
  Transmission Date: 20151125
  Serious: Yes (Other)
  Sender: FDA-Public Use
  Company Number: PHHY2015SI096876

PATIENT
  Age: 38 Year
  Sex: Male

DRUGS (1)
  1. HEPARIN [Suspect]
     Active Substance: HEPARIN SODIUM
     Indication: MYOCARDITIS
     Route: 065

REACTIONS (3)
  - Sepsis [Unknown]
  - Renal failure [Unknown]
  - Heparin-induced thrombocytopenia [Recovered/Resolved]
